FAERS Safety Report 10206917 (Version 1)
Quarter: 2014Q2

REPORT INFORMATION
  Report Type: Spontaneous
  Country: US (occurrence: US)
  Receive Date: 20140530
  Receipt Date: 20140530
  Transmission Date: 20141212
  Serious: No
  Sender: FDA-Public Use
  Company Number: US-009507513-1007USA00945

PATIENT
  Sex: Female

DRUGS (4)
  1. TRUSOPT [Suspect]
     Dosage: 2 GTT, BID
     Route: 047
     Dates: start: 200910
  2. TRUSOPT [Suspect]
     Route: 047
     Dates: start: 20100315
  3. TRUSOPT [Suspect]
     Route: 047
     Dates: start: 20100502
  4. TRUSOPT [Suspect]
     Route: 047
     Dates: start: 20100614

REACTIONS (5)
  - Eye irritation [Unknown]
  - Lacrimation increased [Unknown]
  - Dry eye [Unknown]
  - Wrong technique in drug usage process [Unknown]
  - Medication residue present [Unknown]
